FAERS Safety Report 5546880-8 (Version None)
Quarter: 2007Q4

REPORT INFORMATION
  Report Type: 
  Country: None (occurrence: None)
  Receive Date: 20071211
  Receipt Date: 20070215
  Transmission Date: 20080405
  Serious: No
  Sender: FDA-Public Use
  Company Number: US-AMGEN-KDL211262

PATIENT
  Sex: Female

DRUGS (12)
  1. ENBREL [Suspect]
     Indication: RHEUMATOID ARTHRITIS
     Route: 058
     Dates: start: 19990801
  2. METHOTREXATE [Concomitant]
  3. CELEBREX [Concomitant]
  4. FOLIC ACID [Concomitant]
  5. PREVACID [Concomitant]
  6. TOPROL-XL [Concomitant]
  7. HYDROCHLOROTHIAZIDE [Concomitant]
  8. ATENOLOL [Concomitant]
  9. RHINOCORT [Concomitant]
  10. UNSPECIFIED MEDICATION [Concomitant]
  11. METRO [Concomitant]
  12. FLOMAX [Concomitant]

REACTIONS (6)
  - DECREASED ACTIVITY [None]
  - INFECTION [None]
  - MALAISE [None]
  - MIDDLE EAR EFFUSION [None]
  - ROSACEA [None]
  - WEIGHT INCREASED [None]
